FAERS Safety Report 18354437 (Version 2)
Quarter: 2024Q3

REPORT INFORMATION
  Report Type: Report from Study
  Country: US (occurrence: US)
  Receive Date: 20201007
  Receipt Date: 20240925
  Transmission Date: 20241017
  Serious: No
  Sender: KYOWA
  Company Number: US-KYOWAKIRIN-2020BKK015487

PATIENT

DRUGS (2)
  1. MOGAMULIZUMAB [Suspect]
     Active Substance: MOGAMULIZUMAB
     Indication: Cutaneous T-cell lymphoma
     Dosage: UNK
     Route: 065
     Dates: end: 2020
  2. MOGAMULIZUMAB [Suspect]
     Active Substance: MOGAMULIZUMAB
     Dosage: UNK
     Route: 042

REACTIONS (7)
  - Bite [Unknown]
  - Visual impairment [Unknown]
  - Body temperature increased [Unknown]
  - Hiccups [Not Recovered/Not Resolved]
  - Dyspepsia [Unknown]
  - Urticaria [Unknown]
  - Blood pressure increased [Unknown]
